FAERS Safety Report 5444169-9 (Version None)
Quarter: 2007Q3

REPORT INFORMATION
  Report Type: 
  Country: None (occurrence: None)
  Receive Date: 20070906
  Receipt Date: 20070903
  Transmission Date: 20080115
  Serious: Yes (Hospitalization)
  Sender: FDA-Public Use
  Company Number: DEWYE254903SEP07

PATIENT
  Sex: Male

DRUGS (1)
  1. VENLAFAXINE HCL [Suspect]
     Indication: DEPRESSION
     Route: 048
     Dates: start: 20050801

REACTIONS (2)
  - BRAIN STEM INFARCTION [None]
  - MYALGIA [None]
